FAERS Safety Report 5623667-9 (Version None)
Quarter: 2008Q1

REPORT INFORMATION
  Report Type: 
  Country: None (occurrence: None)
  Receive Date: 20080129
  Receipt Date: 20070404
  Transmission Date: 20080703
  Serious: Yes (Hospitalization)
  Sender: FDA-Public Use
  Company Number: WAES 0704USA00710

PATIENT

DRUGS (1)
  1. PRIMAXIN [Suspect]
     Dosage: IV
     Route: 042

REACTIONS (2)
  - ADVERSE EVENT [None]
  - CONVULSION [None]
